FAERS Safety Report 20589610 (Version 2)
Quarter: 2022Q1

REPORT INFORMATION
  Report Type: Spontaneous
  Country: CN (occurrence: CN)
  Receive Date: 20220314
  Receipt Date: 20220323
  Transmission Date: 20220424
  Serious: Yes (Other)
  Sender: FDA-Public Use
  Company Number: ALC2022CN001212

PATIENT
  Age: 38 Year
  Sex: Male

DRUGS (2)
  1. FLUORESCITE [Suspect]
     Active Substance: FLUORESCEIN SODIUM
     Indication: Angiogram retina
     Dosage: 5ML:0.5G
     Route: 065
  2. TROPICAMIDE [Suspect]
     Active Substance: TROPICAMIDE
     Indication: Pupil dilation procedure
     Route: 047

REACTIONS (12)
  - Anaphylactic shock [Unknown]
  - Dyspnoea [Unknown]
  - Chest discomfort [Unknown]
  - Dizziness [Unknown]
  - Asthenia [Unknown]
  - Pyrexia [Unknown]
  - Erythema [Unknown]
  - Cold sweat [Unknown]
  - Blood pressure systolic decreased [Unknown]
  - Blood pressure diastolic decreased [Unknown]
  - Loss of consciousness [Recovered/Resolved]
  - Tremor [Unknown]
